FAERS Safety Report 7498752-X (Version None)
Quarter: 2011Q2

REPORT INFORMATION
  Report Type: 
  Country: None (occurrence: None)
  Receive Date: 20110524
  Receipt Date: 20110518
  Transmission Date: 20111010
  Serious: Yes (Hospitalization)
  Sender: FDA-Public Use
  Company Number: JP-CEPHALON-2011002507

PATIENT
  Sex: Female
  Weight: 56 kg

DRUGS (14)
  1. BETAMETHASONE [Concomitant]
     Dates: start: 20110218, end: 20110301
  2. RITUXIMAB [Concomitant]
     Dates: start: 20110215, end: 20110314
  3. ITRACONAZOLE [Concomitant]
     Dates: start: 20110216
  4. SULFAMETHOXAZOLE AND TRIMETHOPRIM [Concomitant]
     Dates: start: 20110216
  5. ACYCLOVIR [Concomitant]
     Dates: start: 20110216
  6. MAGNESIUM HYDROXIDE [Concomitant]
     Dates: start: 20110224, end: 20110301
  7. METHOTREXATE [Concomitant]
     Dates: start: 20110214, end: 20110315
  8. MAGNESIUM OXIDE [Concomitant]
     Dates: start: 20110218, end: 20110223
  9. LAFUTIDINE [Concomitant]
  10. BENDAMUSTINE HCL [Suspect]
     Indication: B-CELL LYMPHOMA
     Route: 042
     Dates: start: 20110216, end: 20110217
  11. BENDAMUSTINE HCL [Suspect]
     Route: 042
     Dates: start: 20110315, end: 20110316
  12. DEXAMETHASONE SODIUM PHOSPHATE [Concomitant]
     Dates: start: 20110216, end: 20110316
  13. PALONOSETRON HYDROCHLORIDE [Concomitant]
     Dates: start: 20110216, end: 20110216
  14. LOXOPROFEN SODIUM [Concomitant]

REACTIONS (5)
  - BLOOD LACTATE DEHYDROGENASE INCREASED [None]
  - CONSTIPATION [None]
  - NAUSEA [None]
  - PYREXIA [None]
  - WHITE BLOOD CELL COUNT DECREASED [None]
